FAERS Safety Report 15575972 (Version 1)
Quarter: 2018Q4

REPORT INFORMATION
  Report Type: Spontaneous
  Country: FR (occurrence: FR)
  Receive Date: 20181101
  Receipt Date: 20181101
  Transmission Date: 20190205
  Serious: Yes (Hospitalization)
  Sender: FDA-Public Use
  Company Number: FR-TEVA-2018-FR-970765

PATIENT
  Age: 65 Year
  Sex: Female

DRUGS (14)
  1. TRANSIPEG 5,9 G, POUDRE POUR SOLUTION BUVABLE EN SACHET [Concomitant]
     Dosage: 2 DOSAGE FORMS DAILY;
     Route: 048
     Dates: start: 20171204, end: 20180224
  2. SPECIAFOLDINE 5 MG, COMPRIM? [Concomitant]
     Active Substance: FOLIC ACID
     Dosage: 1 DOSAGE FORMS DAILY;
     Route: 048
     Dates: start: 20161221, end: 20180224
  3. TEGRETOL [Suspect]
     Active Substance: CARBAMAZEPINE
     Indication: EPILEPSY
     Dosage: 2 DOSAGE FORMS DAILY;
     Route: 048
     Dates: start: 20180209, end: 20180222
  4. THERALENE 4 POUR CENT, SOLUTION BUVABLE EN GOUTTES [Concomitant]
     Active Substance: TRIMEPRAZINE
     Dosage: 50 GTT DAILY;
     Route: 048
     Dates: start: 20171010, end: 20180224
  5. COLOPEG [Concomitant]
     Active Substance: POLYETHYLENE GLYCOL 3350\POTASSIUM CHLORIDE\SODIUM BICARBONATE\SODIUM CHLORIDE\SODIUM SULFATE
     Dosage: 3 DOSAGE FORMS DAILY;
     Route: 048
     Dates: start: 20171205, end: 20180309
  6. DAFALGANHOP 1 G, COMPRIM? EFFERVESCENT [Concomitant]
     Dosage: 1 DOSAGE FORMS DAILY;
     Route: 048
     Dates: start: 20171016, end: 20180224
  7. URBANYL 10 MG, G?LULE [Concomitant]
     Dosage: 2 DOSAGE FORMS DAILY;
     Route: 048
     Dates: start: 20160205, end: 20180523
  8. DIPIPERON 40 MG/ML, SOLUTION BUVABLE EN GOUTTES [Concomitant]
     Dosage: 24 GTT DAILY;
     Route: 048
     Dates: start: 20180124, end: 20180518
  9. TARDYFERON 80 MG, COMPRIM? ENROB? [Concomitant]
     Active Substance: FERROUS SULFATE
     Dosage: 1 DOSAGE FORMS DAILY;
     Route: 048
     Dates: start: 20180206, end: 20180224
  10. LANSOYL FRAMBOISE, GEL ORAL EN R?CIPIENT UNIDOSE [Concomitant]
     Dosage: 2 DOSAGE FORMS DAILY;
     Route: 048
     Dates: start: 20171202, end: 20180204
  11. PANTOPRAZOLE [Suspect]
     Active Substance: PANTOPRAZOLE
     Indication: PRODUCT USED FOR UNKNOWN INDICATION
     Dosage: 1 DOSAGE FORMS DAILY;
     Route: 048
     Dates: start: 20180206, end: 20180224
  12. TRIMEBUTINE [Concomitant]
     Active Substance: TRIMEBUTINE
     Dosage: 600 MILLIGRAM DAILY;
     Route: 048
     Dates: start: 20170223, end: 20180224
  13. EPITOMAX 50 MG, COMPRIM? PELLICUL? [Concomitant]
     Dosage: 2 DOSAGE FORMS DAILY;
     Route: 048
     Dates: start: 20180202, end: 20180525
  14. BACTRIM [Concomitant]
     Active Substance: SULFAMETHOXAZOLE\TRIMETHOPRIM
     Dosage: 2 DOSAGE FORMS DAILY;
     Route: 048
     Dates: start: 20180131, end: 20180224

REACTIONS (2)
  - Transaminases increased [Recovered/Resolved]
  - Blood alkaline phosphatase increased [Recovered/Resolved]

NARRATIVE: CASE EVENT DATE: 201802
